FAERS Safety Report 20018915 (Version 7)
Quarter: 2022Q2

REPORT INFORMATION
  Report Type: Report from Study
  Country: NL (occurrence: NL)
  Receive Date: 20211101
  Receipt Date: 20220426
  Transmission Date: 20220721
  Serious: Yes (Hospitalization)
  Sender: FDA-Public Use
  Company Number: NL-ASTELLAS-2021US041247

PATIENT
  Age: 65 Year
  Sex: Female

DRUGS (65)
  1. GILTERITINIB [Suspect]
     Active Substance: GILTERITINIB
     Indication: Acute myeloid leukaemia
     Dosage: 120 MG, ONCE DAILY (ON DAYS 8-21)
     Route: 048
     Dates: start: 20211007, end: 20211020
  2. CYTARABINE [Suspect]
     Active Substance: CYTARABINE
     Indication: Acute myeloid leukaemia
     Dosage: 410 MG, CYCLIC (ON DAYS 1-7)
     Route: 042
     Dates: start: 20210930, end: 20211006
  3. DAUNORUBICIN [Suspect]
     Active Substance: DAUNORUBICIN
     Indication: Acute myeloid leukaemia
     Dosage: 122 MG, CYCLIC (ON DAYS 1-3)
     Route: 042
     Dates: start: 20210930, end: 20211002
  4. OXYCODONE [Concomitant]
     Active Substance: OXYCODONE
     Indication: Product used for unknown indication
     Dosage: 5 MG, OTHER (PRN 6 X PER DAY)
     Route: 065
     Dates: start: 20211008, end: 20211016
  5. OXYCODONE [Concomitant]
     Active Substance: OXYCODONE
     Dosage: 5 MG, OTHER (PRN 6 X PER DAY)
     Route: 065
     Dates: start: 20211017, end: 20211104
  6. PANTOPRAZOLE [Concomitant]
     Active Substance: PANTOPRAZOLE
     Indication: Product used for unknown indication
     Route: 065
     Dates: start: 20211006
  7. PANTOPRAZOLE [Concomitant]
     Active Substance: PANTOPRAZOLE
     Route: 065
     Dates: start: 20211007, end: 20211016
  8. PANTOPRAZOLE [Concomitant]
     Active Substance: PANTOPRAZOLE
     Route: 065
     Dates: start: 20211017, end: 20211104
  9. PREDNISONE [Concomitant]
     Active Substance: PREDNISONE
     Indication: Product used for unknown indication
     Route: 065
     Dates: start: 20211006, end: 20211006
  10. PREDNISONE [Concomitant]
     Active Substance: PREDNISONE
     Route: 065
     Dates: start: 20211007, end: 20211009
  11. PREDNISONE [Concomitant]
     Active Substance: PREDNISONE
     Route: 065
     Dates: start: 20211016, end: 20211016
  12. PREDNISONE [Concomitant]
     Active Substance: PREDNISONE
     Route: 065
     Dates: start: 20211017, end: 20211017
  13. FOLIC ACID [Concomitant]
     Active Substance: FOLIC ACID
     Indication: Product used for unknown indication
     Dosage: UNK UNK, UNKNOWN FREQ. (3 MG COMPLEX SCHEDULE) (STRENGTH: 10 MG/ML)
     Route: 065
     Dates: start: 20211015, end: 20211016
  14. PHYTONADIONE [Concomitant]
     Active Substance: PHYTONADIONE
     Indication: Product used for unknown indication
     Dosage: UNK UNK, UNKNOWN FREQ. (2 MG COMPLEX SCHEDULE) (STRENGTH: 10 MG/ML)
     Route: 065
     Dates: start: 20211014, end: 20211016
  15. TEMAZEPAM [Concomitant]
     Active Substance: TEMAZEPAM
     Indication: Product used for unknown indication
     Dosage: 10 MG, AS NEEDED (PRN FOR THE NIGHT)
     Route: 065
     Dates: start: 20211013, end: 20211016
  16. PREDNISOLONE [Concomitant]
     Active Substance: PREDNISOLONE
     Indication: Product used for unknown indication
     Dosage: 25 MG, UNKNOWN FREQ. (ONCE OFF)
     Route: 065
     Dates: start: 20211008, end: 20211008
  17. PREDNISOLONE [Concomitant]
     Active Substance: PREDNISOLONE
     Dosage: 25 MG, ONCE DAILY (POWDER FOR INJECTION 25 MG VIAL (PARENTERAL))
     Route: 065
     Dates: start: 20211010, end: 20211010
  18. PREDNISOLONE [Concomitant]
     Active Substance: PREDNISOLONE
     Dosage: 50 MG, TWICE DAILY (POWDER FOR INJECTION 25 MG VIAL (PARENTERAL))
     Route: 065
     Dates: start: 20211013, end: 20211015
  19. POTASSIUM CHLORIDE [Concomitant]
     Active Substance: POTASSIUM CHLORIDE
     Indication: Product used for unknown indication
     Dosage: UNK UNK, UNKNOWN FREQ. (1 MMOL/HOUR CONTINUOUS) (STRENGTH: 1 MMOL/ML IN 50 ML SYRINGE)
     Route: 065
     Dates: start: 20211013, end: 20211016
  20. METOCLOPRAMIDE [Concomitant]
     Active Substance: METOCLOPRAMIDE
     Indication: Product used for unknown indication
     Dosage: 10 MG, OTHER (PRN 3 X PER DAY) (STRENGTH: 5 MG/ML)
     Route: 065
     Dates: start: 20211009, end: 20211016
  21. METOCLOPRAMIDE [Concomitant]
     Active Substance: METOCLOPRAMIDE
     Indication: Product used for unknown indication
     Dosage: 10 MG, OTHER (PRN 3 X PER DAY)
     Route: 065
     Dates: start: 20211009, end: 20211009
  22. PANTOPRAZOLE [Concomitant]
     Active Substance: PANTOPRAZOLE
     Indication: Product used for unknown indication
     Dosage: 40 MG, ONCE DAILY (POWDER FOR INJECTION VIAL)
     Route: 065
     Dates: start: 20211009, end: 20211016
  23. DALTEPARIN [Concomitant]
     Active Substance: DALTEPARIN
     Indication: Product used for unknown indication
     Dosage: 18000 IU, ONCE DAILY (STRENGTH: 25,000 IU/ML DISPOSABLE SYRINGE)
     Route: 065
     Dates: start: 20210921, end: 20210923
  24. DALTEPARIN [Concomitant]
     Active Substance: DALTEPARIN
     Dosage: 10000 IU= 0.4 ML, TWICE DAILY
     Route: 065
     Dates: start: 20210923
  25. DALTEPARIN [Concomitant]
     Active Substance: DALTEPARIN
     Dosage: 10000 IU, TWICE DAILY (STRENGTH: 25,000 IU/ML DISPOSABLE SYRINGE)
     Route: 065
     Dates: start: 20210929, end: 20210930
  26. DALTEPARIN [Concomitant]
     Active Substance: DALTEPARIN
     Dosage: 200 IU/KG, ONCE DAILY (STRENGTH: 25,000 IU/ML DISPOSABLE SYRINGE)
     Route: 065
     Dates: start: 20210930, end: 20210930
  27. DALTEPARIN [Concomitant]
     Active Substance: DALTEPARIN
     Dosage: 18000 IU, ONCE DAILY (STRENGTH: 25,000 IU/ML DISPOSABLE SYRINGE)
     Route: 065
     Dates: start: 20210930, end: 20211008
  28. DALTEPARIN [Concomitant]
     Active Substance: DALTEPARIN
     Dosage: 7500 IU, TWICE DAILY (STRENGTH: 25,000 IU/ML DISPOSABLE SYRINGE)
     Route: 065
     Dates: start: 20211008, end: 20211020
  29. DALTEPARIN [Concomitant]
     Active Substance: DALTEPARIN
     Dosage: 10000 IU= 0.4 ML, TWICE DAILY
     Route: 065
     Dates: end: 20211104
  30. ONDANSETRON [Concomitant]
     Active Substance: ONDANSETRON
     Indication: Product used for unknown indication
     Dosage: 8 MG, OTHER (ONCE OFF) (MELTING TABLET)
     Route: 065
     Dates: start: 20210930, end: 20210930
  31. ONDANSETRON [Concomitant]
     Active Substance: ONDANSETRON
     Dosage: 8 MG, OTHER (ONCE OFF) (MELTING TABLET)
     Route: 065
     Dates: start: 20211001, end: 20211001
  32. ONDANSETRON [Concomitant]
     Active Substance: ONDANSETRON
     Dosage: 8 MG, OTHER (ONCE OFF) (MELTING TABLET)
     Route: 065
     Dates: start: 20211002, end: 20211002
  33. ONDANSETRON [Concomitant]
     Active Substance: ONDANSETRON
     Dosage: 8 MG, OTHER (ONCE OFF) (MELTING TABLET)
     Route: 065
     Dates: start: 20211003
  34. ONDANSETRON [Concomitant]
     Active Substance: ONDANSETRON
     Dosage: 8 MG, OTHER (ONCE OFF) (MELTING TABLET)
     Route: 065
     Dates: start: 20211004, end: 20211004
  35. ONDANSETRON [Concomitant]
     Active Substance: ONDANSETRON
     Dosage: 8 MG, OTHER (ONCE OFF) (MELTING TABLET)
     Route: 065
     Dates: start: 20211005, end: 20211005
  36. ONDANSETRON [Concomitant]
     Active Substance: ONDANSETRON
     Dosage: 8 MG, OTHER (ONCE OFF) (MELTING TABLET)
     Route: 065
     Dates: start: 20211006, end: 20211006
  37. ONDANSETRON [Concomitant]
     Active Substance: ONDANSETRON
     Dosage: 8 MG, OTHER (ONCE OFF) (MELTING TABLET)
     Route: 065
     Dates: end: 20211008
  38. ONDANSETRON [Concomitant]
     Active Substance: ONDANSETRON
     Indication: Product used for unknown indication
     Dosage: 8 MG, AS NEEDED (STREGTH: 2MG/ML)
     Route: 065
     Dates: start: 20210930
  39. ONDANSETRON [Concomitant]
     Active Substance: ONDANSETRON
     Dosage: 8 MG, AS NEEDED (STREGTH: 2MG/ML)
     Route: 065
     Dates: start: 20211001
  40. ONDANSETRON [Concomitant]
     Active Substance: ONDANSETRON
     Dosage: 8 MG, AS NEEDED (STREGTH: 2MG/ML)
     Route: 065
     Dates: start: 20211002
  41. ONDANSETRON [Concomitant]
     Active Substance: ONDANSETRON
     Dosage: 8 MG, AS NEEDED (STREGTH: 2MG/ML)
     Route: 065
     Dates: start: 20211003
  42. ONDANSETRON [Concomitant]
     Active Substance: ONDANSETRON
     Dosage: 8 MG, AS NEEDED (STREGTH: 2MG/ML)
     Route: 065
     Dates: start: 20211004
  43. ONDANSETRON [Concomitant]
     Active Substance: ONDANSETRON
     Dosage: 8 MG, AS NEEDED (STREGTH: 2MG/ML)
     Route: 065
     Dates: start: 20211005
  44. ONDANSETRON [Concomitant]
     Active Substance: ONDANSETRON
     Dosage: 8 MG, AS NEEDED (STREGTH: 2MG/ML)
     Route: 065
     Dates: start: 20211006, end: 20211007
  45. ALGELDRATE\MAGNESIUM HYDROXIDE [Concomitant]
     Active Substance: ALGELDRATE\MAGNESIUM HYDROXIDE
     Indication: Product used for unknown indication
     Dosage: 10 ML, OTHER (PRN 3 X PER DAY)
     Route: 048
  46. POSACONAZOLE [Concomitant]
     Active Substance: POSACONAZOLE
     Indication: Product used for unknown indication
     Route: 048
     Dates: start: 20210921, end: 20210922
  47. POSACONAZOLE [Concomitant]
     Active Substance: POSACONAZOLE
     Route: 048
     Dates: start: 20210922, end: 20210923
  48. POSACONAZOLE [Concomitant]
     Active Substance: POSACONAZOLE
     Route: 048
     Dates: start: 20210929, end: 20210929
  49. POSACONAZOLE [Concomitant]
     Active Substance: POSACONAZOLE
     Route: 048
     Dates: start: 20210929, end: 20211001
  50. BISOPROLOL [Concomitant]
     Active Substance: BISOPROLOL
     Indication: Product used for unknown indication
     Route: 048
     Dates: start: 20210930, end: 20211020
  51. BISOPROLOL [Concomitant]
     Active Substance: BISOPROLOL
     Route: 048
     Dates: end: 20211104
  52. ENALAPRIL [Concomitant]
     Active Substance: ENALAPRIL
     Indication: Product used for unknown indication
     Route: 048
     Dates: start: 20210930, end: 20211008
  53. ENALAPRIL [Concomitant]
     Active Substance: ENALAPRIL
     Route: 048
     Dates: end: 20211104
  54. FLECAINIDE [Concomitant]
     Active Substance: FLECAINIDE
     Indication: Product used for unknown indication
     Dosage: 100 MG, ONCE DAILY (CONTROLLED-RELEASE CAPSULE)
     Route: 048
     Dates: start: 20210929, end: 20210930
  55. FLECAINIDE [Concomitant]
     Active Substance: FLECAINIDE
     Dosage: 100 MG, ONCE DAILY (CONTROLLED-RELEASE CAPSULE)
     Route: 048
     Dates: end: 20211104
  56. COLISTIN [Concomitant]
     Active Substance: COLISTIN
     Indication: Product used for unknown indication
     Dosage: 95 MG, 4 TIMES DAILY (MONOTHERAPY TABLET)
     Route: 065
     Dates: start: 20210929, end: 20211009
  57. COTRIMOXAZOLE [Concomitant]
     Active Substance: SULFAMETHOXAZOLE\TRIMETHOPRIM
     Indication: Product used for unknown indication
     Dosage: 1 DF, TWICE DAILY (960 MG 160/800 MG)
     Route: 065
     Dates: start: 20210929, end: 20211009
  58. CIPROFLOXACIN [Concomitant]
     Active Substance: CIPROFLOXACIN
     Indication: Product used for unknown indication
     Route: 048
     Dates: start: 20210921, end: 20211104
  59. PRAVASTATIN [Concomitant]
     Active Substance: PRAVASTATIN
     Indication: Product used for unknown indication
     Route: 048
     Dates: start: 20210929, end: 20211008
  60. PRAVASTATIN [Concomitant]
     Active Substance: PRAVASTATIN
     Route: 048
     Dates: end: 20211104
  61. VORICONAZOLE [Concomitant]
     Active Substance: VORICONAZOLE
     Indication: Product used for unknown indication
     Route: 048
     Dates: start: 20210923, end: 20210924
  62. VORICONAZOLE [Concomitant]
     Active Substance: VORICONAZOLE
     Route: 048
     Dates: start: 20210924, end: 20211104
  63. MIDAZOLAM [Concomitant]
     Active Substance: MIDAZOLAM
     Indication: Product used for unknown indication
     Dosage: UNK UNK, AS NEEDED (STRENGTH: 5 MG/ML)
     Route: 065
     Dates: start: 20210927, end: 20210928
  64. AMOXICILLIN [Concomitant]
     Active Substance: AMOXICILLIN
     Indication: Product used for unknown indication
     Route: 048
     Dates: start: 20210923, end: 20211104
  65. APIXABAN [Concomitant]
     Active Substance: APIXABAN
     Indication: Product used for unknown indication
     Route: 048
     Dates: end: 20210921

REACTIONS (1)
  - Neutropenic colitis [Recovered/Resolved]

NARRATIVE: CASE EVENT DATE: 20211018
